FAERS Safety Report 6027547-9 (Version None)
Quarter: 2009Q1

REPORT INFORMATION
  Report Type: 
  Country: None (occurrence: None)
  Receive Date: 20090105
  Receipt Date: 20081225
  Transmission Date: 20090719
  Serious: Yes (Life-Threatening)
  Sender: FDA-Public Use
  Company Number: TW-ELI_LILLY_AND_COMPANY-TW200812005835

PATIENT
  Age: 50 Year
  Sex: Female
  Weight: 50 kg

DRUGS (1)
  1. ZYPREXA [Suspect]
     Indication: DISSOCIATIVE IDENTITY DISORDER
     Dosage: 10 MG, UNK
     Route: 030
     Dates: start: 20081225

REACTIONS (1)
  - HYPOVOLAEMIC SHOCK [None]
